FAERS Safety Report 4578950-5 (Version None)
Quarter: 2005Q1

REPORT INFORMATION
  Report Type: 
  Country: None (occurrence: None)
  Receive Date: 20050211
  Receipt Date: 20050203
  Transmission Date: 20050727
  Serious: Yes (Life-Threatening)
  Sender: FDA-Public Use
  Company Number: US-MERCK-0502USA00498

PATIENT
  Age: 61 Year
  Sex: Female

DRUGS (3)
  1. TOPROL-XL [Concomitant]
     Route: 065
  2. ZOCOR [Suspect]
     Indication: HYPERCHOLESTEROLAEMIA
     Route: 048
     Dates: start: 20040501
  3. COUMADIN [Concomitant]
     Route: 065

REACTIONS (2)
  - EPISTAXIS [None]
  - PROTHROMBIN LEVEL INCREASED [None]
